FAERS Safety Report 8535502-X (Version None)
Quarter: 2012Q3

REPORT INFORMATION
  Report Type: 
  Country: None (occurrence: None)
  Receive Date: 20120718
  Receipt Date: 20120718
  Transmission Date: 20120928
  Serious: Yes (Hospitalization, Other)
  Sender: FDA-Public Use
  Company Number: None

PATIENT
  Sex: Male
  Weight: 99.7913 kg

DRUGS (1)
  1. ATORVASTATIN [Suspect]
     Indication: BLOOD CHOLESTEROL INCREASED
     Dosage: 10MG, QTY 90 1 QHS PO
     Route: 048
     Dates: start: 20120329, end: 20120528

REACTIONS (4)
  - BIOPSY LYMPH GLAND ABNORMAL [None]
  - MULTIPLE MYELOMA [None]
  - HEPATIC NEOPLASM MALIGNANT [None]
  - HEPATIC FAILURE [None]
